FAERS Safety Report 12376015 (Version 2)
Quarter: 2016Q3

REPORT INFORMATION
  Report Type: Spontaneous
  Country: US (occurrence: US)
  Receive Date: 20160517
  Receipt Date: 20160901
  Transmission Date: 20161109
  Serious: No
  Sender: FDA-Public Use
  Company Number: US-RELYPSA-RLY2016000087

PATIENT
  Age: 70 Year
  Sex: Female

DRUGS (7)
  1. VELTASSA [Suspect]
     Active Substance: PATIROMER
     Indication: HYPERKALAEMIA
     Dosage: 16.8 GM, TIW
     Route: 048
  2. VITAMIN D3 [Concomitant]
     Active Substance: CHOLECALCIFEROL
  3. LISINOPRIL. [Concomitant]
     Active Substance: LISINOPRIL
  4. ALLOPURINOL                        /00003302/ [Concomitant]
     Active Substance: ALLOPURINOL
  5. SODIUM BICARBONATE. [Concomitant]
     Active Substance: SODIUM BICARBONATE
  6. AMLODIPINE BESYLATE. [Concomitant]
     Active Substance: AMLODIPINE BESYLATE
  7. PRAVASTATIN SODIUM. [Concomitant]
     Active Substance: PRAVASTATIN SODIUM

REACTIONS (2)
  - Muscle spasms [Unknown]
  - Cluster headache [Unknown]

NARRATIVE: CASE EVENT DATE: 201602
